FAERS Safety Report 25534652 (Version 1)
Quarter: 2025Q3

REPORT INFORMATION
  Report Type: Spontaneous
  Country: US (occurrence: None)
  Receive Date: 20250709
  Receipt Date: 20250709
  Transmission Date: 20251021
  Serious: Yes (Death)
  Sender: FDA-CTU
  Company Number: None

PATIENT
  Age: 86 Year
  Sex: Male
  Weight: 69.8 kg

DRUGS (1)
  1. MEMANTINE HYDROCHLORIDE [Suspect]
     Active Substance: MEMANTINE HYDROCHLORIDE
     Dates: end: 20240818

REACTIONS (5)
  - Mental status changes [None]
  - Brief resolved unexplained event [None]
  - Dyspnoea [None]
  - Hypotension [None]
  - Cardiac disorder [None]

NARRATIVE: CASE EVENT DATE: 20240919
